FAERS Safety Report 8611564-6 (Version None)
Quarter: 2012Q3

REPORT INFORMATION
  Report Type: 
  Country: None (occurrence: None)
  Receive Date: 20120822
  Receipt Date: 20120814
  Transmission Date: 20120928
  Serious: Yes (Disabling)
  Sender: FDA-Public Use
  Company Number: PHHY2012PT070722

PATIENT
  Sex: Male
  Weight: 90 kg

DRUGS (8)
  1. TAMSULOSIN HCL [Suspect]
     Indication: URINE FLOW DECREASED
     Dosage: 0.4 MG, QD
     Route: 048
     Dates: end: 20120722
  2. AMLODIPINE [Concomitant]
     Indication: HYPERTENSION
     Dosage: 5 MG, QD
     Route: 048
  3. METFORMIN [Concomitant]
     Indication: DIABETES MELLITUS
     Dosage: 1000 MG, TID
     Route: 048
  4. GLICLAZIDE [Concomitant]
     Indication: DIABETES MELLITUS
     Dosage: 30 MG, BID
     Route: 048
  5. ASPIRIN [Concomitant]
     Indication: CORONARY ARTERY BYPASS
     Dosage: 150 MG, QD
     Route: 048
  6. LANTUS [Concomitant]
     Indication: DIABETES MELLITUS
     Dosage: 28 IU, QD
     Route: 058
  7. SIMVASTATIN [Concomitant]
     Indication: DIABETES MELLITUS
     Dosage: 20 MG, QD
     Route: 048
  8. RAMIPRIL [Concomitant]
     Indication: HYPERTENSION
     Dosage: 5 MG, QD
     Route: 048

REACTIONS (4)
  - ERECTILE DYSFUNCTION [None]
  - CONCOMITANT DISEASE AGGRAVATED [None]
  - RESPIRATORY DISTRESS [None]
  - DIZZINESS [None]
